FAERS Safety Report 9330094 (Version 2)
Quarter: 2013Q2

REPORT INFORMATION
  Report Type: Spontaneous
  Country: US (occurrence: None)
  Receive Date: 20130531
  Receipt Date: 20130618
  Transmission Date: 20140414
  Serious: Yes (Hospitalization)
  Sender: FDA-Public Use
  Company Number: JPI-P-032223

PATIENT
  Age: 41 Year
  Sex: Female

DRUGS (1)
  1. XYREM [Suspect]
     Indication: HYPERSOMNIA
     Dosage: (2.25 GM, 2 IN 1 D)
     Route: 048
     Dates: start: 20130501, end: 201305

REACTIONS (3)
  - Dyskinesia [None]
  - Hallucination [None]
  - Dyskinesia [None]
